FAERS Safety Report 11050538 (Version 1)
Quarter: 2015Q2

REPORT INFORMATION
  Report Type: Report from Study
  Country: AU (occurrence: AU)
  Receive Date: 20150421
  Receipt Date: 20150421
  Transmission Date: 20150821
  Serious: Yes (Hospitalization)
  Sender: FDA-Public Use
  Company Number: AU-ROCHE-1219841

PATIENT
  Age: 65 Year
  Sex: Male

DRUGS (21)
  1. FLUCLOXACILLIN [Concomitant]
     Active Substance: FLUCLOXACILLIN
     Route: 048
     Dates: start: 20120330
  2. ONDANSETRON [Concomitant]
     Active Substance: ONDANSETRON
     Route: 042
     Dates: start: 20120413
  3. KEPPRA [Concomitant]
     Active Substance: LEVETIRACETAM
     Route: 048
  4. COLOXYL + SENNA [Concomitant]
     Route: 048
     Dates: start: 20120327
  5. ENDONE [Concomitant]
     Active Substance: OXYCODONE HYDROCHLORIDE
     Route: 048
     Dates: start: 20120327
  6. CELEBREX [Concomitant]
     Active Substance: CELECOXIB
     Route: 048
     Dates: start: 20120329
  7. FLUCLOXACILLIN [Concomitant]
     Active Substance: FLUCLOXACILLIN
     Route: 042
     Dates: start: 20120327
  8. OXYCONTIN [Concomitant]
     Active Substance: OXYCODONE HYDROCHLORIDE
     Route: 048
     Dates: start: 20120328
  9. COVERSYL [Concomitant]
     Active Substance: PERINDOPRIL
     Route: 048
     Dates: start: 2012
  10. COLOXYL + SENNA [Concomitant]
     Indication: CONSTIPATION
     Route: 048
     Dates: start: 2011
  11. TEMAZEPAM. [Concomitant]
     Active Substance: TEMAZEPAM
     Indication: INSOMNIA
     Route: 048
     Dates: start: 2011
  12. FLUCLOXACILLIN [Concomitant]
     Active Substance: FLUCLOXACILLIN
     Route: 065
  13. METOCLOPRAMIDE. [Concomitant]
     Active Substance: METOCLOPRAMIDE
     Route: 048
     Dates: start: 20130413
  14. LACTULOSE. [Concomitant]
     Active Substance: LACTULOSE
     Route: 048
     Dates: start: 20120329, end: 20120329
  15. NEXIUM [Concomitant]
     Active Substance: ESOMEPRAZOLE MAGNESIUM
     Indication: PROPHYLAXIS
     Route: 048
     Dates: start: 2011
  16. PARACETAMOL [Concomitant]
     Active Substance: ACETAMINOPHEN
     Route: 048
     Dates: start: 20120327
  17. CELECOXIB. [Concomitant]
     Active Substance: CELECOXIB
     Route: 048
     Dates: start: 20120409
  18. BEVACIZUMAB [Suspect]
     Active Substance: BEVACIZUMAB
     Indication: BRAIN NEOPLASM
     Route: 065
     Dates: start: 20120209
  19. KEPPRA [Concomitant]
     Active Substance: LEVETIRACETAM
     Indication: PROPHYLAXIS
     Route: 048
     Dates: start: 201102
  20. CIPRAMIL [Concomitant]
     Active Substance: CITALOPRAM HYDROBROMIDE
     Route: 048
     Dates: start: 2002
  21. METOCLOPRAMIDE. [Concomitant]
     Active Substance: METOCLOPRAMIDE
     Route: 048
     Dates: start: 20120329

REACTIONS (2)
  - Hypoglycaemia [Recovered/Resolved]
  - Transient ischaemic attack [Recovered/Resolved]

NARRATIVE: CASE EVENT DATE: 20130416
